FAERS Safety Report 22616654 (Version 10)
Quarter: 2023Q4

REPORT INFORMATION
  Report Type: Report from Study
  Country: CN (occurrence: None)
  Receive Date: 20230619
  Receipt Date: 20231204
  Transmission Date: 20240110
  Serious: Yes (Death, Hospitalization)
  Sender: FDA-Public Use
  Company Number: CN-ROCHE-3304812

PATIENT
  Age: 76 Year
  Sex: Male
  Weight: 53 kg

DRUGS (32)
  1. PLACEBO [Suspect]
     Active Substance: UNSPECIFIED INGREDIENT
     Indication: Small cell lung cancer extensive stage
     Dosage: DATE OF MOST RECENT DOSE OF PRIOR TO AE ONSET 15/FEB/2023, 20/MAR/2023
     Route: 042
     Dates: start: 20230118
  2. ATEZOLIZUMAB [Suspect]
     Active Substance: ATEZOLIZUMAB
     Indication: Small cell lung cancer extensive stage
     Dosage: DATE OF MOST RECENT DOSE OF ATEZOLIZUMAB PRIOR TO AE ONSET:15/FEB/2023.?ON 20/MAR/2023, MOST RECENT
     Route: 041
     Dates: start: 20230118
  3. ATEZOLIZUMAB [Suspect]
     Active Substance: ATEZOLIZUMAB
     Route: 041
     Dates: start: 20230320
  4. CARBOPLATIN [Suspect]
     Active Substance: CARBOPLATIN
     Indication: Small cell lung cancer extensive stage
     Dosage: DOSE OF LAST CARBOPLATIN ADMINISTERED PRIOR TO AE ONSET: 273 MG ON 15/FEB/2023?ON 20/MAR/2023, MOST
     Route: 042
     Dates: start: 20230118
  5. CARBOPLATIN [Suspect]
     Active Substance: CARBOPLATIN
     Route: 042
     Dates: start: 20230320
  6. ETOPOSIDE [Suspect]
     Active Substance: ETOPOSIDE
     Indication: Small cell lung cancer extensive stage
     Dosage: DOSE OF LAST ETOPOSIDE ADMINISTERED PRIOR TO AE ONSET: 92 MG?DATE OF MOST RECENT DOSE OF ETOPOSIDE P
     Route: 042
     Dates: start: 20230118
  7. ETOPOSIDE [Suspect]
     Active Substance: ETOPOSIDE
     Route: 042
     Dates: start: 20230322
  8. ESTAZOLAM [Concomitant]
     Active Substance: ESTAZOLAM
     Indication: Insomnia
     Route: 048
     Dates: start: 20230117
  9. TROPISETRON HYDROCHLORIDE [Concomitant]
     Active Substance: TROPISETRON HYDROCHLORIDE
     Route: 042
     Dates: start: 20230118, end: 20230121
  10. PANTOPRAZOLE SODIUM [Concomitant]
     Active Substance: PANTOPRAZOLE SODIUM
     Route: 042
     Dates: start: 20230118, end: 20230121
  11. PANTOPRAZOLE SODIUM [Concomitant]
     Active Substance: PANTOPRAZOLE SODIUM
     Route: 042
     Dates: start: 20230314, end: 20230318
  12. PANTOPRAZOLE SODIUM [Concomitant]
     Active Substance: PANTOPRAZOLE SODIUM
     Route: 042
     Dates: start: 20230215, end: 20230218
  13. PANTOPRAZOLE SODIUM [Concomitant]
     Active Substance: PANTOPRAZOLE SODIUM
     Route: 042
     Dates: start: 20230320, end: 20230323
  14. METOCLOPRAMIDE HYDROCHLORIDE [Concomitant]
     Active Substance: METOCLOPRAMIDE HYDROCHLORIDE
     Route: 030
     Dates: start: 20230118, end: 20230121
  15. METOCLOPRAMIDE HYDROCHLORIDE [Concomitant]
     Active Substance: METOCLOPRAMIDE HYDROCHLORIDE
     Route: 030
     Dates: start: 20230322, end: 20230322
  16. MORPHINE HYDROCHLORIDE [Concomitant]
     Active Substance: MORPHINE HYDROCHLORIDE
     Route: 058
     Dates: start: 20230119, end: 20230119
  17. ESCULIN AND DIGITALISGLYCOSIDES [Concomitant]
     Indication: Vitreous opacities
     Dates: start: 20230217
  18. DEXAMETHASONE SODIUM PHOSPHATE [Concomitant]
     Active Substance: DEXAMETHASONE PHOSPHATE\DEXAMETHASONE SODIUM PHOSPHATE
     Indication: Upper respiratory tract infection
     Route: 048
     Dates: start: 20230519, end: 20230525
  19. THROMBOPOIETIN [Concomitant]
     Active Substance: THROMBOPOIETIN
     Indication: Platelet count decreased
     Route: 058
     Dates: start: 20230403, end: 20230404
  20. THROMBOPOIETIN [Concomitant]
     Active Substance: THROMBOPOIETIN
     Route: 058
     Dates: start: 20230323, end: 20230323
  21. VITAMIN B6 [Concomitant]
     Active Substance: PYRIDOXINE HYDROCHLORIDE
     Dosage: VITAMIN B6 SUPPLEMENTS
     Route: 042
     Dates: start: 20230206, end: 20230208
  22. PROMETHAZINE HYDROCHLORIDE [Concomitant]
     Active Substance: PROMETHAZINE HYDROCHLORIDE
     Route: 030
     Dates: start: 20230204, end: 20230204
  23. GLUTATHIONE [Concomitant]
     Active Substance: GLUTATHIONE
     Route: 042
     Dates: start: 20230216, end: 20230218
  24. GLUTATHIONE [Concomitant]
     Active Substance: GLUTATHIONE
     Route: 042
     Dates: start: 20230320, end: 20230323
  25. ONDANSETRON HYDROCHLORIDE [Concomitant]
     Active Substance: ONDANSETRON HYDROCHLORIDE
     Route: 042
     Dates: start: 20230215, end: 20230218
  26. ONDANSETRON HYDROCHLORIDE [Concomitant]
     Active Substance: ONDANSETRON HYDROCHLORIDE
     Route: 042
     Dates: start: 20230320, end: 20230323
  27. METOCLOPRAMIDE HYDROCHLORIDE [Concomitant]
     Active Substance: METOCLOPRAMIDE HYDROCHLORIDE
     Route: 030
     Dates: start: 20230215, end: 20230215
  28. VITAMIN C [Concomitant]
     Active Substance: ASCORBIC ACID
     Route: 042
     Dates: start: 20230206, end: 20230208
  29. POTASSIUM SODIUM 14-DEOXY-11,12-DEHYDROANDROGRAPHOLIDE SUCCINATE [Concomitant]
     Active Substance: POTASSIUM SODIUM 14-DEOXY-11,12-DEHYDROANDROGRAPHOLIDE SUCCINATE
     Indication: Upper respiratory tract infection
     Route: 042
     Dates: start: 20230519, end: 20230525
  30. PENICILLIN G SODIUM [Concomitant]
     Active Substance: PENICILLIN G SODIUM
     Route: 058
     Dates: start: 20230425, end: 20230425
  31. REDUCED GLUTATHIONE [Concomitant]
     Route: 042
     Dates: start: 20230506, end: 20230506
  32. REDUCED GLUTATHIONE [Concomitant]
     Route: 042
     Dates: start: 20230425, end: 20230505

REACTIONS (3)
  - Respiratory failure [Fatal]
  - Interstitial lung disease [Fatal]
  - Haemoptysis [Not Recovered/Not Resolved]

NARRATIVE: CASE EVENT DATE: 20230308
